FAERS Safety Report 9401981 (Version 1)
Quarter: 2013Q3

REPORT INFORMATION
  Report Type: Spontaneous
  Country: US (occurrence: US)
  Receive Date: 20130716
  Receipt Date: 20130716
  Transmission Date: 20140515
  Serious: No
  Sender: FDA-Public Use
  Company Number: US-PFIZER INC-2013205571

PATIENT
  Sex: Female

DRUGS (2)
  1. LYRICA [Suspect]
     Dosage: UNK
     Dates: end: 2012
  2. LYRICA [Suspect]
     Dosage: UNK, NOT TAKING EVERYDAY

REACTIONS (8)
  - Narcolepsy [Unknown]
  - Abnormal dreams [Unknown]
  - Sleep disorder [Unknown]
  - Middle insomnia [Unknown]
  - Dyskinesia [Unknown]
  - Sleep talking [Unknown]
  - Abnormal behaviour [Unknown]
  - Intentional drug misuse [Unknown]
